FAERS Safety Report 6470749-8 (Version None)
Quarter: 2009Q4

REPORT INFORMATION
  Report Type: 
  Country: None (occurrence: None)
  Receive Date: 20091203
  Receipt Date: 20091126
  Transmission Date: 20100525
  Serious: Yes (Hospitalization)
  Sender: FDA-Public Use
  Company Number: B0585648A

PATIENT
  Sex: Female

DRUGS (5)
  1. ELTROMBOPAG OLAMINE [Suspect]
     Indication: THROMBOCYTOPENIA
     Route: 048
     Dates: start: 20090701, end: 20090714
  2. RENIVEZE [Concomitant]
     Indication: HYPERTENSION
     Dosage: 5MG PER DAY
     Route: 048
     Dates: start: 20040515, end: 20090730
  3. URSO 250 [Concomitant]
     Indication: HEPATIC CIRRHOSIS
     Route: 048
     Dates: start: 20040604
  4. HERBESSER [Concomitant]
     Indication: HYPERTENSION
     Route: 048
     Dates: start: 20040604
  5. METHYCOBAL [Concomitant]
     Indication: ASTHENOPIA
     Route: 048
     Dates: start: 20090511

REACTIONS (3)
  - ABDOMINAL DISTENSION [None]
  - ASCITES [None]
  - FLANK PAIN [None]
